FAERS Safety Report 15251285 (Version 1)
Quarter: 2018Q3

REPORT INFORMATION
  Report Type: Spontaneous
  Country: IT (occurrence: IT)
  Receive Date: 20180807
  Receipt Date: 20180807
  Transmission Date: 20181010
  Serious: Yes (Hospitalization)
  Sender: FDA-Public Use
  Company Number: IT-PFIZER INC-2018316207

PATIENT
  Age: 70 Year
  Sex: Female

DRUGS (2)
  1. LEXOTAN [Suspect]
     Active Substance: BROMAZEPAM
     Dosage: UNK
     Route: 048
     Dates: start: 20180206, end: 20180206
  2. XANAX [Suspect]
     Active Substance: ALPRAZOLAM
     Dosage: UNK
     Route: 048
     Dates: start: 20180206, end: 20180206

REACTIONS (4)
  - Sopor [Unknown]
  - Intentional overdose [Unknown]
  - Drug abuse [Unknown]
  - Hypotension [Unknown]

NARRATIVE: CASE EVENT DATE: 20180206
